FAERS Safety Report 9332562 (Version 3)
Quarter: 2013Q4

REPORT INFORMATION
  Report Type: Report from Study
  Country: CA (occurrence: CA)
  Receive Date: 20130606
  Receipt Date: 20131210
  Transmission Date: 20140711
  Serious: Yes (Hospitalization, Other)
  Sender: FDA-Public Use
  Company Number: CA-ROCHE-790544

PATIENT
  Age: 55 Year
  Sex: Female
  Weight: 93.9 kg

DRUGS (9)
  1. RITUXAN [Suspect]
     Indication: RHEUMATOID ARTHRITIS
     Route: 042
  2. THYROXINE [Concomitant]
  3. CIPRALEX [Concomitant]
  4. FEMARA [Concomitant]
  5. PANTOLOC [Concomitant]
  6. IBUPROFEN [Concomitant]
  7. DIPHENHYDRAMINE HYDROCHLORIDE [Concomitant]
     Indication: PREMEDICATION
     Dosage: FREQUENCY: ONCE
     Route: 048
     Dates: start: 20110714, end: 20110714
  8. ACETAMINOPHEN [Concomitant]
     Indication: PREMEDICATION
     Dosage: FREQUENCY: ONCE
     Route: 048
     Dates: start: 20110714, end: 20110714
  9. VITAMIN B12 [Concomitant]

REACTIONS (6)
  - Appendicitis [Recovered/Resolved]
  - Hypotension [Unknown]
  - Heart rate decreased [Unknown]
  - Nasopharyngitis [Recovering/Resolving]
  - Allergy to metals [Not Recovered/Not Resolved]
  - Rheumatoid arthritis [Not Recovered/Not Resolved]
